FAERS Safety Report 11427740 (Version 2)
Quarter: 2015Q3

REPORT INFORMATION
  Report Type: Report from Study
  Country: CA (occurrence: CA)
  Receive Date: 20150828
  Receipt Date: 20150930
  Transmission Date: 20151125
  Serious: Yes (Other)
  Sender: FDA-Public Use
  Company Number: CA-ROCHE-1305021

PATIENT
  Sex: Female
  Weight: 50 kg

DRUGS (12)
  1. NASONEX [Concomitant]
     Active Substance: MOMETASONE FUROATE
  2. AVAPRO [Concomitant]
     Active Substance: IRBESARTAN
  3. CELEBREX [Concomitant]
     Active Substance: CELECOXIB
  4. ACTEMRA [Suspect]
     Active Substance: TOCILIZUMAB
     Indication: RHEUMATOID ARTHRITIS
     Route: 042
     Dates: start: 20130619, end: 20150728
  5. ACTEMRA [Suspect]
     Active Substance: TOCILIZUMAB
     Route: 042
     Dates: start: 20140320
  6. NEXIUM [Concomitant]
     Active Substance: ESOMEPRAZOLE MAGNESIUM
  7. METHOTREXATE [Concomitant]
     Active Substance: METHOTREXATE
  8. ACTEMRA [Suspect]
     Active Substance: TOCILIZUMAB
     Route: 042
     Dates: start: 20140210
  9. ALDACTONE [Concomitant]
     Active Substance: SPIRONOLACTONE
  10. COLCHICINE. [Concomitant]
     Active Substance: COLCHICINE
  11. ASA [Concomitant]
     Active Substance: ASPIRIN
  12. ATIVAN [Concomitant]
     Active Substance: LORAZEPAM

REACTIONS (6)
  - Basal cell carcinoma [Not Recovered/Not Resolved]
  - Therapeutic response decreased [Recovered/Resolved]
  - Infection [Not Recovered/Not Resolved]
  - Weight decreased [Unknown]
  - Immunodeficiency [Not Recovered/Not Resolved]
  - Poor venous access [Unknown]
